FAERS Safety Report 14343893 (Version 4)
Quarter: 2018Q1

REPORT INFORMATION
  Report Type: Report from Study
  Country: US (occurrence: US)
  Receive Date: 20180102
  Receipt Date: 20180222
  Transmission Date: 20180509
  Serious: Yes (Hospitalization)
  Sender: FDA-Public Use
  Company Number: US-ACTELION-A-NJ2017-164636

PATIENT
  Age: 58 Year
  Sex: Female
  Weight: 66.67 kg

DRUGS (10)
  1. UPTRAVI [Suspect]
     Active Substance: SELEXIPAG
     Dosage: 200 MCG, UNK
     Route: 048
     Dates: start: 20171226
  2. UPTRAVI [Suspect]
     Active Substance: SELEXIPAG
     Dosage: 400 MCG, BID
     Route: 048
  3. FUROSEMIDE. [Concomitant]
     Active Substance: FUROSEMIDE
     Dosage: 40 MG, 1 1/2 TABLET QD
  4. UPTRAVI [Suspect]
     Active Substance: SELEXIPAG
     Dosage: 600 MCG, BID
     Route: 048
  5. ADCIRCA [Concomitant]
     Active Substance: TADALAFIL
  6. UPTRAVI [Suspect]
     Active Substance: SELEXIPAG
     Dosage: 800 MCG, BID
     Route: 048
  7. ELIQUIS [Concomitant]
     Active Substance: APIXABAN
  8. LETAIRIS [Concomitant]
     Active Substance: AMBRISENTAN
  9. UPTRAVI [Suspect]
     Active Substance: SELEXIPAG
     Indication: PULMONARY ARTERIAL HYPERTENSION
     Dosage: 400 MCG, BID
     Route: 048
     Dates: end: 201712
  10. SILDENAFIL CITRATE. [Concomitant]
     Active Substance: SILDENAFIL CITRATE

REACTIONS (7)
  - Dyspnoea [Unknown]
  - Weight increased [Unknown]
  - Nasal congestion [Unknown]
  - Headache [Recovered/Resolved]
  - Bone pain [Recovered/Resolved]
  - Nasopharyngitis [Unknown]
  - Dyspnoea exertional [Unknown]
